FAERS Safety Report 25876543 (Version 1)
Quarter: 2025Q4

REPORT INFORMATION
  Report Type: Report from Study
  Country: EU (occurrence: EU)
  Receive Date: 20251003
  Receipt Date: 20251003
  Transmission Date: 20260117
  Serious: Yes (Hospitalization)
  Sender: TEVA
  Company Number: None

PATIENT
  Age: 32 Year
  Sex: Male
  Weight: 107 kg

DRUGS (6)
  1. PREDNISONE [Suspect]
     Active Substance: PREDNISONE
     Indication: Bone hypertrophy
     Dosage: REGULAR SHOCK TREATMENTS, BRAND NAME NOT SPECIFIED
     Route: 048
     Dates: start: 2007
  2. POLYETHYLENE GLYCOLS [Concomitant]
     Active Substance: POLYETHYLENE GLYCOLS
     Indication: Product used for unknown indication
     Dosage: MACROGOL/SALTS PDR V DRINK (MOVIPREP) / BRAND NAME NOT SPECIFIED
     Route: 048
  3. CHOLECALCIFEROL [Concomitant]
     Active Substance: CHOLECALCIFEROL
     Indication: Product used for unknown indication
     Dosage: CAPSULE, 400 UNITS, 400IE, BRAND NAME NOT SPECIFIED
     Route: 048
  4. LEVETIRACETAM [Concomitant]
     Active Substance: LEVETIRACETAM
     Indication: Product used for unknown indication
     Dosage: TABLET FO, BRAND NAME NOT SPECIFIED
     Route: 048
  5. OMEPRAZOLE [Concomitant]
     Active Substance: OMEPRAZOLE
     Indication: Product used for unknown indication
     Dosage: CAPSULE MSR, BRAND NAME NOT SPECIFIED
     Route: 048
  6. HYDROCORTISONE [Concomitant]
     Active Substance: HYDROCORTISONE
     Indication: Product used for unknown indication
     Dosage: BRAND NAME NOT SPECIFIED
     Route: 048

REACTIONS (1)
  - Epidural lipomatosis [Unknown]

NARRATIVE: CASE EVENT DATE: 20160924
